FAERS Safety Report 20806506 (Version 1)
Quarter: 2022Q2

REPORT INFORMATION
  Report Type: Spontaneous
  Country: EE (occurrence: EE)
  Receive Date: 20220510
  Receipt Date: 20220510
  Transmission Date: 20220721
  Serious: Yes (Death, Life-Threatening, Hospitalization, Other)
  Sender: FDA-Public Use
  Company Number: EE-VALIDUS PHARMACEUTICALS LLC-EE-VDP-2022-015487

PATIENT

DRUGS (1)
  1. MEPERIDINE HYDROCHLORIDE [Suspect]
     Active Substance: MEPERIDINE HYDROCHLORIDE
     Indication: Analgesic therapy
     Dosage: 25 MG, QID
     Route: 065
     Dates: start: 20210808, end: 20210808

REACTIONS (1)
  - Neonatal respiratory failure [Fatal]

NARRATIVE: CASE EVENT DATE: 20190808
